FAERS Safety Report 12464516 (Version 1)
Quarter: 2016Q2

REPORT INFORMATION
  Report Type: Spontaneous
  Country: US (occurrence: None)
  Receive Date: 20160613
  Receipt Date: 20160613
  Transmission Date: 20160815
  Serious: No
  Sender: FDA-Public Use
  Company Number: None

PATIENT
  Age: 74 Year
  Sex: Male

DRUGS (3)
  1. COQ 10 [Concomitant]
     Active Substance: UBIDECARENONE
  2. XELODA [Suspect]
     Active Substance: CAPECITABINE
     Dosage: 1500 MG BID X 14 DAYS PO
     Route: 048
     Dates: start: 20160212
  3. MULTIVITAMIN [Concomitant]
     Active Substance: VITAMINS

REACTIONS (2)
  - Lymphoedema [None]
  - Palmar-plantar erythrodysaesthesia syndrome [None]

NARRATIVE: CASE EVENT DATE: 20160610
